FAERS Safety Report 13660711 (Version 3)
Quarter: 2017Q3

REPORT INFORMATION
  Report Type: Report from Study
  Country: US (occurrence: US)
  Receive Date: 20170616
  Receipt Date: 20170901
  Transmission Date: 20171127
  Serious: Yes (Disabling, Other)
  Sender: FDA-Public Use
  Company Number: US-009507513-1706USA004212

PATIENT
  Sex: Female

DRUGS (4)
  1. ZOCOR [Suspect]
     Active Substance: SIMVASTATIN
     Dosage: 20 MG, QD
     Route: 048
  2. GEMFIBROZIL. [Suspect]
     Active Substance: GEMFIBROZIL
     Dosage: 600 (UNITS UNKNOWN), TID
  3. ZOCOR [Suspect]
     Active Substance: SIMVASTATIN
     Dosage: 10 MG, UNK
     Route: 048
  4. METOPROLOL. [Suspect]
     Active Substance: METOPROLOL
     Dosage: 200 MG, UNK

REACTIONS (13)
  - Carotid artery occlusion [Unknown]
  - Vomiting [Unknown]
  - Listless [Unknown]
  - Adverse event [Unknown]
  - Vitamin D decreased [Unknown]
  - Pain [Unknown]
  - Drug ineffective [Unknown]
  - Eating disorder [Unknown]
  - Impaired self-care [Recovering/Resolving]
  - Fatigue [Unknown]
  - Weight increased [Recovering/Resolving]
  - Feeling abnormal [Unknown]
  - Product use complaint [Unknown]
